FAERS Safety Report 18961678 (Version 1)
Quarter: 2021Q1

REPORT INFORMATION
  Report Type: Spontaneous
  Country: US (occurrence: US)
  Receive Date: 20210302
  Receipt Date: 20210302
  Transmission Date: 20210420
  Serious: No
  Sender: FDA-Public Use
  Company Number: US-PFIZER INC-2021218306

PATIENT
  Age: 85 Year
  Sex: Female
  Weight: 58.97 kg

DRUGS (3)
  1. LYRICA [Suspect]
     Active Substance: PREGABALIN
     Indication: NERVE INJURY
  2. LYRICA [Suspect]
     Active Substance: PREGABALIN
     Indication: NEURALGIA
  3. LYRICA [Suspect]
     Active Substance: PREGABALIN
     Indication: NEUROPATHY PERIPHERAL
     Dosage: 25 MG, (ONE TO THREE CAPSULES AT NIGHT, ONE CAPSULE IN THE AM, AND ONE CAPSULE AT NOON)
     Dates: start: 20210212

REACTIONS (5)
  - Spondylitis [Unknown]
  - Headache [Unknown]
  - Pain [Unknown]
  - Hypersensitivity [Unknown]
  - Dizziness [Unknown]
